FAERS Safety Report 4906408-X (Version None)
Quarter: 2006Q1

REPORT INFORMATION
  Report Type: 
  Country: None (occurrence: None)
  Receive Date: 20060209
  Receipt Date: 20060131
  Transmission Date: 20060701
  Serious: Yes (Hospitalization)
  Sender: FDA-Public Use
  Company Number: US-JNJFOC-20060200219

PATIENT
  Sex: Male
  Weight: 109.77 kg

DRUGS (10)
  1. INFLIXIMAB [Suspect]
     Route: 042
  2. INFLIXIMAB [Suspect]
     Route: 042
  3. INFLIXIMAB [Suspect]
     Route: 042
  4. INFLIXIMAB [Suspect]
     Route: 042
  5. INFLIXIMAB [Suspect]
     Route: 042
  6. INFLIXIMAB [Suspect]
     Route: 042
  7. INFLIXIMAB [Suspect]
     Indication: CROHN'S DISEASE
     Route: 042
  8. PREDNISONE [Suspect]
     Indication: CROHN'S DISEASE
  9. MERCAPTOPURINE [Suspect]
     Indication: CROHN'S DISEASE
  10. BUDESONIDE [Suspect]
     Indication: CROHN'S DISEASE

REACTIONS (1)
  - FACIAL PALSY [None]
